FAERS Safety Report 14022043 (Version 1)
Quarter: 2017Q3

REPORT INFORMATION
  Report Type: Spontaneous
  Country: DE (occurrence: DE)
  Receive Date: 20170928
  Receipt Date: 20170928
  Transmission Date: 20171128
  Serious: Yes (Other)
  Sender: FDA-Public Use
  Company Number: DE-PURDUE PHARMA-GBR-2017-0049057

PATIENT
  Sex: Male

DRUGS (9)
  1. LYRICA [Suspect]
     Active Substance: PREGABALIN
     Indication: PAIN
     Dosage: 75 MG, UNK
     Route: 048
  2. MORPHIN AL [Suspect]
     Active Substance: MORPHINE SULFATE
     Indication: PAIN
     Dosage: 60 MG, BID
     Route: 048
  3. PANTOPRAZOL [Concomitant]
     Active Substance: PANTOPRAZOLE SODIUM
     Dosage: 40 MG, BID
     Route: 048
  4. MORPHIN AL [Suspect]
     Active Substance: MORPHINE SULFATE
     Indication: PAIN
     Dosage: 100 MG, TID
     Route: 048
  5. ASS 1 A PHARMA [Concomitant]
     Dosage: 100 MG, DAILY
     Route: 048
  6. SEVREDOL [Suspect]
     Active Substance: MORPHINE
     Indication: PAIN
     Dosage: 20 MG, BID PRN
     Route: 048
  7. TORASEMID ABZ [Concomitant]
     Dosage: 25 MG, DAILY
     Route: 048
  8. RAMILICH [Concomitant]
     Active Substance: RAMIPRIL
     Dosage: 2.5 MG, DAILY
     Route: 048
  9. SIMVA [Concomitant]
     Active Substance: SIMVASTATIN
     Dosage: 40 MG, DAILY
     Route: 048

REACTIONS (6)
  - Weight increased [Recovered/Resolved]
  - Fatigue [Recovered/Resolved]
  - Disturbance in attention [Recovered/Resolved]
  - Fall [Recovered/Resolved]
  - Overdose [Recovered/Resolved]
  - Visual impairment [Recovered/Resolved]
